FAERS Safety Report 6956695-1 (Version None)
Quarter: 2010Q3

REPORT INFORMATION
  Report Type: 
  Country: None (occurrence: None)
  Receive Date: 20100830
  Receipt Date: 20100820
  Transmission Date: 20110219
  Serious: Yes (Hospitalization, Other)
  Sender: FDA-Public Use
  Company Number: FR-ABBOTT-10P-056-0665325-00

PATIENT
  Age: 50 Year
  Sex: Female

DRUGS (4)
  1. KALETRA [Suspect]
     Indication: HIV INFECTION
     Dates: start: 20030101
  2. NAVELBINE [Interacting]
     Indication: METASTASIS
     Route: 042
     Dates: start: 20100709
  3. TRUVADA [Concomitant]
     Indication: HIV INFECTION
     Dates: start: 20030101
  4. HERCEPTINE [Concomitant]
     Indication: METASTASIS
     Dates: start: 20100101

REACTIONS (10)
  - AGRANULOCYTOSIS [None]
  - ANAEMIA [None]
  - BREAST CANCER [None]
  - DRUG INTERACTION [None]
  - DYSPNOEA [None]
  - METASTASES TO BONE [None]
  - METASTASES TO SPINE [None]
  - NEUROPATHY PERIPHERAL [None]
  - NEUTROPENIA [None]
  - PYREXIA [None]
